FAERS Safety Report 9916317 (Version 1)
Quarter: 2014Q1

REPORT INFORMATION
  Report Type: Report from Study
  Country: US (occurrence: US)
  Receive Date: 20140221
  Receipt Date: 20140221
  Transmission Date: 20141002
  Serious: Yes (Life-Threatening, Hospitalization)
  Sender: FDA-Public Use
  Company Number: US-009507513-1402USA010173

PATIENT
  Age: 69 Year
  Sex: Male
  Weight: 97.2 kg

DRUGS (3)
  1. VORINOSTAT [Suspect]
     Indication: MYELODYSPLASTIC SYNDROME
     Dosage: 300 MG, BID, CYCLE 1, ON DAYS 3-9, EACH CYCLE: 28 DAYS
     Route: 048
     Dates: start: 20130417, end: 20130423
  2. AZACITIDINE [Suspect]
     Indication: MYELODYSPLASTIC SYNDROME
     Dosage: 75 MG/M2, SQ OR IV ON DAYS 1-7 OR ON DAYS 1-5 AND DAYS 8-9, CYCLE 11, CYCLE: 28 DAYS
     Dates: start: 20140203, end: 20140204
  3. AZACITIDINE [Suspect]
     Dosage: 75 MG/M2, SQ OR IV ON DAYS 1-7 OR ON DAYS 1-5 AND DAYS 8-9, CYCLE 1, CYCLE: 28 DAYS
     Dates: start: 20130415

REACTIONS (3)
  - Lung infection [Not Recovered/Not Resolved]
  - Hypoxia [Not Recovered/Not Resolved]
  - Renal failure acute [Not Recovered/Not Resolved]
